FAERS Safety Report 20143674 (Version 5)
Quarter: 2022Q3

REPORT INFORMATION
  Report Type: Report from Study
  Country: JP (occurrence: JP)
  Receive Date: 20211203
  Receipt Date: 20220725
  Transmission Date: 20221027
  Serious: Yes (Death, Other)
  Sender: FDA-Public Use
  Company Number: JP-TAKEDA-2021TJP124855

PATIENT

DRUGS (2)
  1. NIRAPARIB [Suspect]
     Active Substance: NIRAPARIB
     Indication: Ovarian cancer
     Dosage: 200 MILLIGRAM
     Route: 048
     Dates: start: 20210216, end: 202103
  2. NIRAPARIB [Suspect]
     Active Substance: NIRAPARIB
     Dosage: 100 MILLIGRAM
     Route: 048
     Dates: start: 202104

REACTIONS (3)
  - Ovarian cancer [Fatal]
  - Disease progression [Fatal]
  - Hepatic function abnormal [Recovered/Resolved]

NARRATIVE: CASE EVENT DATE: 20210301
